FAERS Safety Report 9690818 (Version 1)
Quarter: 2013Q4

REPORT INFORMATION
  Report Type: Spontaneous
  Country: BR (occurrence: BR)
  Receive Date: 20131115
  Receipt Date: 20131115
  Transmission Date: 20140711
  Serious: Yes (Other)
  Sender: FDA-Public Use
  Company Number: BR-SA-2013SA114743

PATIENT
  Sex: Male
  Weight: 71 kg

DRUGS (9)
  1. LANTUS [Suspect]
     Indication: TYPE 2 DIABETES MELLITUS
     Route: 058
     Dates: start: 2003
  2. AUTOPEN 24 [Concomitant]
     Indication: DEVICE THERAPY
     Dates: end: 20131105
  3. HUMALOG [Concomitant]
     Indication: TYPE 2 DIABETES MELLITUS
     Route: 058
  4. BENERVA [Concomitant]
     Indication: VITAMIN B1
     Route: 048
  5. AVODART [Concomitant]
     Indication: PROSTATIC DISORDER
     Route: 048
  6. VYTORIN [Concomitant]
     Indication: BLOOD CHOLESTEROL
     Dosage: STRENGTH: 10+20 MG
     Route: 048
  7. AAS [Concomitant]
     Indication: CARDIOVASCULAR DISORDER
     Route: 048
  8. MICARDIS [Concomitant]
     Indication: HYPERTENSION
     Dosage: STRENGTH: 40/12.5 MG
     Route: 048
  9. ATENOLOL [Concomitant]
     Indication: HYPERTENSION
     Dosage: STRENGTH: 25 MG
     Route: 048

REACTIONS (3)
  - Cataract [Recovered/Resolved]
  - Visual impairment [Recovered/Resolved]
  - Venous occlusion [Recovered/Resolved]
